FAERS Safety Report 4336473-2 (Version None)
Quarter: 2004Q2

REPORT INFORMATION
  Report Type: 
  Country: None (occurrence: None)
  Receive Date: 20040407
  Receipt Date: 20040324
  Transmission Date: 20050107
  Serious: Yes (Life-Threatening, Hospitalization)
  Sender: FDA-Public Use
  Company Number: USA040363081

PATIENT
  Age: 22 Year
  Sex: Female
  Weight: 82 kg

DRUGS (3)
  1. ZYPREXA [Suspect]
     Indication: SCHIZOPHRENIA
     Dosage: 30 MG DAY
     Dates: start: 20030101
  2. METHADONE HCL [Concomitant]
  3. CLONAZEPAM [Concomitant]

REACTIONS (16)
  - BACK PAIN [None]
  - CONDITION AGGRAVATED [None]
  - DEHYDRATION [None]
  - DRUG INEFFECTIVE [None]
  - FAECALOMA [None]
  - FLUID RETENTION [None]
  - INFLUENZA [None]
  - MENTAL DISORDER [None]
  - PAIN [None]
  - PAIN IN EXTREMITY [None]
  - PNEUMONIA [None]
  - SINUS TACHYCARDIA [None]
  - SOMNOLENCE [None]
  - STAPHYLOCOCCAL SEPSIS [None]
  - URINARY TRACT INFECTION [None]
  - WEIGHT INCREASED [None]
